FAERS Safety Report 12211989 (Version 1)
Quarter: 2016Q1

REPORT INFORMATION
  Report Type: Spontaneous
  Country: BR (occurrence: BR)
  Receive Date: 20160325
  Receipt Date: 20160325
  Transmission Date: 20160526
  Serious: Yes (Hospitalization)
  Sender: FDA-Public Use
  Company Number: BR-ASTRAZENECA-2016SE32431

PATIENT
  Age: 45 Year
  Sex: Female
  Weight: 74 kg

DRUGS (18)
  1. FORXIGA [Suspect]
     Active Substance: DAPAGLIFLOZIN
     Indication: TYPE 2 DIABETES MELLITUS
     Route: 048
  2. ROSUVASTATIN [Suspect]
     Active Substance: ROSUVASTATIN
     Indication: TYPE 2 DIABETES MELLITUS
     Dosage: GENERIC
     Route: 048
  3. NPH INSULIN [Concomitant]
     Active Substance: INSULIN BEEF
     Dosage: 44 IU AT MORNING, 20 IU AT LUNCHAND10 IU AT DINNER.
  4. NPH INSULIN [Concomitant]
     Active Substance: INSULIN BEEF
     Dosage: NPH 40IU ATMORNING, 20IU ATLUNCHAND20 IU ATDINNER
  5. VITAMIN D [Concomitant]
     Active Substance: CHOLECALCIFEROL
  6. INSULIN [Concomitant]
     Active Substance: INSULIN NOS
     Dosage: REGULAR 8 IU AT BREAKFAST, 12 IU AT LUNCH AND 8 IU AT DINNER
  7. NPH INSULIN [Concomitant]
     Active Substance: INSULIN BEEF
     Dosage: 40 IU AT MORNING, 20 IU AT LUNCH AND 28 IU AT DINNER
  8. CERAZETTE [Concomitant]
     Active Substance: DESOGESTREL
  9. ZETIA [Concomitant]
     Active Substance: EZETIMIBE
  10. GLIFAGE [Concomitant]
     Active Substance: METFORMIN HYDROCHLORIDE
  11. NPH INSULIN [Concomitant]
     Active Substance: INSULIN BEEF
     Dosage: 48 IU AT BREAKFAST AND 32 IU AT DINNER
  12. ROSUVASTATIN [Suspect]
     Active Substance: ROSUVASTATIN
     Indication: TYPE 2 DIABETES MELLITUS
     Dosage: GENERIC
     Route: 048
  13. SIMVASTATIN. [Concomitant]
     Active Substance: SIMVASTATIN
  14. GLIFAGE [Concomitant]
     Active Substance: METFORMIN HYDROCHLORIDE
  15. INSULIN [Concomitant]
     Active Substance: INSULIN NOS
     Dosage: REGULAR 8/12/8
  16. INSULIN [Concomitant]
     Active Substance: INSULIN NOS
     Dosage: AT DINNER AND REGULAR 4/6/4
  17. ASA [Concomitant]
     Active Substance: ASPIRIN
  18. NPH INSULIN [Concomitant]
     Active Substance: INSULIN BEEF
     Dosage: USING NPH INSULIN 38 IU AT MORNING, 20 IU AT LUNCH AND 26 IU AT DINNER

REACTIONS (8)
  - Hypercholesterolaemia [Recovered/Resolved]
  - Glycosylated haemoglobin increased [Recovered/Resolved]
  - Polyuria [Unknown]
  - Nephrolithiasis [Unknown]
  - Weight decreased [Unknown]
  - High density lipoprotein decreased [Recovered/Resolved]
  - Blood glucose increased [Recovered/Resolved]
  - Low density lipoprotein increased [Recovered/Resolved]
